FAERS Safety Report 12171011 (Version 5)
Quarter: 2017Q3

REPORT INFORMATION
  Report Type: Report from Study
  Country: JP (occurrence: JP)
  Receive Date: 20160311
  Receipt Date: 20170704
  Transmission Date: 20171127
  Serious: Yes (Hospitalization)
  Sender: FDA-Public Use
  Company Number: PHJP2015JP017094

PATIENT
  Age: 50 Year
  Sex: Male

DRUGS (4)
  1. OXAROL [Suspect]
     Active Substance: MAXACALCITOL
     Indication: PRODUCT USED FOR UNKNOWN INDICATION
     Dosage: UNK
     Route: 061
     Dates: end: 20151014
  2. PROPADERM [Concomitant]
     Active Substance: BECLOMETHASONE DIPROPIONATE
     Indication: PRODUCT USED FOR UNKNOWN INDICATION
     Dosage: UNK
     Route: 061
     Dates: end: 20151014
  3. HIRUDOID [Concomitant]
     Active Substance: GLYCOSAMINOGLYCANS
     Indication: PRODUCT USED FOR UNKNOWN INDICATION
     Dosage: UNK
     Route: 061
     Dates: start: 20151014
  4. COSENTYX [Suspect]
     Active Substance: SECUKINUMAB
     Indication: PSORIATIC ARTHROPATHY
     Dosage: 300 MG,PER ADMINISTRATION
     Route: 058
     Dates: start: 20150930, end: 20160120

REACTIONS (4)
  - Myelodysplastic syndrome [Unknown]
  - Myeloblast count increased [Unknown]
  - Injection site pain [Recovered/Resolved]
  - Leukaemia [Unknown]

NARRATIVE: CASE EVENT DATE: 20150930
